FAERS Safety Report 22007720 (Version 3)
Quarter: 2023Q1

REPORT INFORMATION
  Report Type: Spontaneous
  Country: CN (occurrence: CN)
  Receive Date: 20230218
  Receipt Date: 20230227
  Transmission Date: 20230418
  Serious: Yes (Hospitalization, Disabling)
  Sender: FDA-Public Use
  Company Number: CN-002147023-NVSC2023CN034788

PATIENT
  Age: 82 Year
  Sex: Female
  Weight: 40 kg

DRUGS (2)
  1. SACUBITRIL\VALSARTAN [Suspect]
     Active Substance: SACUBITRIL\VALSARTAN
     Indication: Blood pressure measurement
     Dosage: 100 MG, QD
     Route: 048
     Dates: start: 20230101, end: 20230102
  2. SACUBITRIL\VALSARTAN [Suspect]
     Active Substance: SACUBITRIL\VALSARTAN
     Dosage: 200 MG, QD
     Route: 048
     Dates: start: 20230103, end: 20230103

REACTIONS (4)
  - Acute kidney injury [Unknown]
  - Pneumonia [Unknown]
  - Hypertension [Unknown]
  - Hypotension [Unknown]

NARRATIVE: CASE EVENT DATE: 20230104
